FAERS Safety Report 8034181-8 (Version None)
Quarter: 2012Q1

REPORT INFORMATION
  Report Type: 
  Country: None (occurrence: None)
  Receive Date: 20120110
  Receipt Date: 20120109
  Transmission Date: 20120608
  Serious: Yes (Other)
  Sender: FDA-Public Use
  Company Number: FR-ABBOTT-11P-056-0853020-00

PATIENT
  Sex: Female
  Weight: 56 kg

DRUGS (3)
  1. HUMIRA [Suspect]
     Indication: PSORIASIS
     Dosage: 80MG THEN 40 MG EOW
     Route: 058
     Dates: start: 20101117, end: 20101213
  2. XANAX [Concomitant]
     Indication: ANXIETY
     Route: 048
     Dates: start: 20060101
  3. ZOLPIDEM [Concomitant]
     Indication: ANXIETY
     Route: 048
     Dates: start: 20060101

REACTIONS (2)
  - ARRHYTHMIA [None]
  - VENTRICULAR EXTRASYSTOLES [None]
